FAERS Safety Report 9882441 (Version 2)
Quarter: 2014Q2

REPORT INFORMATION
  Report Type: Spontaneous
  Country: US (occurrence: US)
  Receive Date: 20140207
  Receipt Date: 20140606
  Transmission Date: 20141212
  Serious: Yes (Hospitalization)
  Sender: FDA-Public Use
  Company Number: US-PFIZER INC-2014032342

PATIENT
  Age: 35 Year
  Sex: Male
  Weight: 72.56 kg

DRUGS (4)
  1. FLAGYL [Suspect]
     Indication: INFECTION
     Dosage: 500 MG, 3X/DAY
     Dates: start: 201311, end: 20140106
  2. ROCEPHIN [Suspect]
     Dosage: UNK
     Dates: end: 20140106
  3. INSULIN [Concomitant]
     Indication: DIABETES MELLITUS
     Dosage: UNK
  4. AMLODIPINE [Concomitant]
     Indication: BLOOD PRESSURE
     Dosage: 10 MG, DAILY

REACTIONS (3)
  - Muscular weakness [Not Recovered/Not Resolved]
  - Paraesthesia [Not Recovered/Not Resolved]
  - Hypoaesthesia [Not Recovered/Not Resolved]
